FAERS Safety Report 8941194 (Version 5)
Quarter: 2013Q3

REPORT INFORMATION
  Report Type: Spontaneous
  Country: CA (occurrence: CA)
  Receive Date: 20121203
  Receipt Date: 20130816
  Transmission Date: 20140515
  Serious: Yes (Other)
  Sender: FDA-Public Use
  Company Number: CA-PFIZER INC-2012300465

PATIENT
  Age: 55 Year
  Sex: Male
  Weight: 88.4 kg

DRUGS (3)
  1. CHAMPIX [Suspect]
     Indication: SMOKING CESSATION THERAPY
     Dosage: 1MG PILL IN THE MORNING AT 07:00 AND 1MG AT NIGHT 19:00
     Dates: start: 20121020, end: 20121201
  2. COVERSYL PLUS [Concomitant]
     Indication: HYPERTENSION
     Dosage: 8MG/2.5MG, 1X/DAY AT 07:00
     Route: 048
     Dates: start: 20121020
  3. AMLODIPINE BESILATE [Concomitant]
     Indication: HYPERTENSION
     Dosage: 5 MG, 1X/DAY
     Route: 048
     Dates: start: 20121110

REACTIONS (6)
  - Presyncope [Recovered/Resolved]
  - Vision blurred [Not Recovered/Not Resolved]
  - Dizziness [Not Recovered/Not Resolved]
  - Insomnia [Not Recovered/Not Resolved]
  - Somnolence [Not Recovered/Not Resolved]
  - Libido decreased [Not Recovered/Not Resolved]
